FAERS Safety Report 6808759-0 (Version None)
Quarter: 2010Q2

REPORT INFORMATION
  Report Type: 
  Country: None (occurrence: None)
  Receive Date: 20100630
  Receipt Date: 20091103
  Transmission Date: 20101027
  Serious: No
  Sender: FDA-Public Use
  Company Number: US-PFIZER INC-2009269660

PATIENT
  Sex: Male
  Weight: 81.6 kg

DRUGS (7)
  1. VIAGRA [Suspect]
     Indication: ERECTILE DYSFUNCTION
     Route: 048
     Dates: start: 20090601
  2. CITALOPRAM [Concomitant]
     Dosage: 10 MG, 1X/DAY DAILY DOSE: 10 MG
     Route: 048
  3. METFORMIN [Concomitant]
     Indication: DIABETES MELLITUS
     Dosage: 500 MG, 2X/DAY DAILY DOSE: 1000 MG
     Route: 048
  4. LISINOPRIL [Concomitant]
     Indication: HYPERTENSION
     Dosage: 10 MG, 1X/DAY DAILY DOSE: 10 MG
  5. ATROVENT [Concomitant]
     Indication: LUNG DISORDER
     Dosage: DAILY DOSE: 4 PUFFS
  6. ALBUTEROL [Concomitant]
     Indication: LUNG DISORDER
     Dosage: DAILY DOSE: 4 PUFFS
  7. ADVAIR DISKUS 100/50 [Concomitant]
     Indication: LUNG DISORDER
     Dosage: DAILY DOSE: 2 PUFFS

REACTIONS (1)
  - DRUG INEFFECTIVE [None]
